FAERS Safety Report 7704342-3 (Version None)
Quarter: 2011Q3

REPORT INFORMATION
  Report Type: 
  Country: None (occurrence: None)
  Receive Date: 20110823
  Receipt Date: 20110816
  Transmission Date: 20111222
  Serious: Yes (Other)
  Sender: FDA-Public Use
  Company Number: CA-PFIZER INC-2011149745

PATIENT
  Age: 60 Year
  Sex: Female
  Weight: 88.889 kg

DRUGS (8)
  1. XALATAN [Suspect]
     Indication: GLAUCOMA
     Dosage: 1 GTT IN BOTH EYES, 1X/DAY
     Route: 047
     Dates: start: 20110601
  2. ACCUPRIL [Concomitant]
     Indication: HYPERTENSION
     Dosage: 40 MG, 1X/DAY
     Dates: start: 20090101
  3. PREMARIN [Concomitant]
     Indication: OESTROGEN THERAPY
     Dosage: 0.625 MG, 1X/DAY
  4. CRESTOR [Concomitant]
     Indication: BLOOD CHOLESTEROL
     Dosage: 10 MG, 1X/DAY
  5. INSULIN [Concomitant]
     Indication: DIABETES MELLITUS
     Dosage: 20 UNITS, 3X/DAY
     Dates: start: 19700101
  6. NAPROXEN [Concomitant]
     Indication: ARTHRITIS
     Dosage: 500 MG, 1X/DAY
  7. AMOXICILLIN [Concomitant]
     Indication: LOWER RESPIRATORY TRACT INFECTION
     Dosage: 500 MG, 3X/DAY
     Dates: start: 20110804, end: 20110811
  8. INDAPAMIDE [Concomitant]
     Indication: FLUID RETENTION
     Dosage: 1.25 MG, 1X/DAY

REACTIONS (4)
  - EYE PAIN [None]
  - ASTHENOPIA [None]
  - OCULAR HYPERAEMIA [None]
  - MACULAR DEGENERATION [None]
